FAERS Safety Report 7492205-0 (Version None)
Quarter: 2011Q2

REPORT INFORMATION
  Report Type: 
  Country: None (occurrence: None)
  Receive Date: 20110519
  Receipt Date: 20101108
  Transmission Date: 20111010
  Serious: No
  Sender: FDA-Public Use
  Company Number: US-NOVEN-ALL1-2010-05220

PATIENT
  Age: 10 Year
  Sex: Male
  Weight: 27.211 kg

DRUGS (2)
  1. DAYTRANA [Suspect]
     Dosage: 20 MG, 1X/DAY:QD
     Route: 062
  2. PROAIR HFA [Concomitant]
     Dosage: UNK, AS REQ'D (2 TO 4 PUFFS)
     Route: 055

REACTIONS (3)
  - WRONG TECHNIQUE IN DRUG USAGE PROCESS [None]
  - DRUG DIVERSION [None]
  - INCORRECT DOSE ADMINISTERED [None]
